FAERS Safety Report 25400341 (Version 1)
Quarter: 2025Q2

REPORT INFORMATION
  Report Type: Report from Study
  Country: CA (occurrence: CA)
  Receive Date: 20250605
  Receipt Date: 20250605
  Transmission Date: 20250716
  Serious: Yes (Death, Hospitalization)
  Sender: CSL BEHRING
  Company Number: CA-BEH-2025204003

PATIENT
  Age: 75 Year
  Sex: Male

DRUGS (1)
  1. VELPHORO [Suspect]
     Active Substance: SUCROFERRIC OXYHYDROXIDE
     Indication: Product used for unknown indication
     Dosage: 500 MG, QD WITH SUPPER AS DIRECTED
     Route: 048
     Dates: start: 20240328

REACTIONS (2)
  - Death [Fatal]
  - Intensive care [Unknown]

NARRATIVE: CASE EVENT DATE: 20250510
